FAERS Safety Report 12250934 (Version 3)
Quarter: 2016Q3

REPORT INFORMATION
  Report Type: Spontaneous
  Country: GB (occurrence: GB)
  Receive Date: 20160409
  Receipt Date: 20160803
  Transmission Date: 20161109
  Serious: Yes (Other)
  Sender: FDA-Public Use
  Company Number: GB-AMGEN-GBRSP2016040520

PATIENT
  Age: 47 Year
  Sex: Female

DRUGS (1)
  1. ENBREL [Suspect]
     Active Substance: ETANERCEPT
     Indication: RHEUMATOID ARTHRITIS
     Dosage: 50 MG, WEEKLY
     Route: 058
     Dates: start: 20160217

REACTIONS (10)
  - Sputum discoloured [Unknown]
  - Lower respiratory tract infection bacterial [Recovered/Resolved]
  - Nasopharyngitis [Unknown]
  - Viral infection [Recovered/Resolved]
  - Malaise [Unknown]
  - Rhinorrhoea [Unknown]
  - Lethargy [Unknown]
  - Productive cough [Unknown]
  - Condition aggravated [Unknown]
  - Infection [Recovered/Resolved]

NARRATIVE: CASE EVENT DATE: 2016
